FAERS Safety Report 16834623 (Version 4)
Quarter: 2020Q3

REPORT INFORMATION
  Report Type: Spontaneous
  Country: JP (occurrence: JP)
  Receive Date: 20190920
  Receipt Date: 20200727
  Transmission Date: 20201102
  Serious: Yes (Death, Other)
  Sender: FDA-Public Use
  Company Number: JP-JAZZ-2019-JP-013113

PATIENT
  Age: 10 Year
  Sex: Male
  Weight: 35.9 kg

DRUGS (2)
  1. DEFITELIO [Suspect]
     Active Substance: DEFIBROTIDE SODIUM
     Indication: VENOOCCLUSIVE LIVER DISEASE
     Dosage: 22.2 MILLIGRAM/KILOGRAM, QD
     Route: 042
     Dates: start: 20190911, end: 20190915
  2. ACOALAN [Concomitant]
     Indication: PRODUCT USED FOR UNKNOWN INDICATION
     Dosage: UNK
     Dates: start: 20190912, end: 20190912

REACTIONS (5)
  - Off label use [Unknown]
  - Multiple organ dysfunction syndrome [Fatal]
  - Disease progression [Fatal]
  - Hypotension [Not Recovered/Not Resolved]
  - Adenovirus infection [Fatal]

NARRATIVE: CASE EVENT DATE: 20190911
